FAERS Safety Report 11109089 (Version 1)
Quarter: 2015Q2

REPORT INFORMATION
  Report Type: Spontaneous
  Country: GB (occurrence: GB)
  Receive Date: 20150513
  Receipt Date: 20150513
  Transmission Date: 20150821
  Serious: Yes (Death, Life-Threatening, Hospitalization, Other)
  Sender: FDA-Public Use
  Company Number: GB-ROXANE LABORATORIES, INC.-2009-DE-07617GD

PATIENT
  Age: 62 Year
  Sex: Female

DRUGS (5)
  1. PARACETAMOL+CODEINE [Suspect]
     Active Substance: ACETAMINOPHEN\CODEINE PHOSPHATE
     Route: 065
  2. METHOTREXATE [Suspect]
     Active Substance: METHOTREXATE
     Indication: RHEUMATOID ARTHRITIS
     Route: 065
  3. FLUOXETINE [Concomitant]
     Active Substance: FLUOXETINE\FLUOXETINE HYDROCHLORIDE
     Indication: DEPRESSION
     Route: 065
  4. CHLORAL HYDRATE [Suspect]
     Active Substance: CHLORAL HYDRATE
     Route: 065
  5. DIAZEPAM. [Suspect]
     Active Substance: DIAZEPAM
     Route: 065

REACTIONS (9)
  - Loss of consciousness [Recovered/Resolved]
  - Hemiparesis [Unknown]
  - Intentional overdose [Recovered/Resolved]
  - Obstructive airways disorder [Recovered/Resolved]
  - Respiratory disorder [Unknown]
  - Cerebrovascular accident [Fatal]
  - Drug abuse [Unknown]
  - Suicide attempt [Recovered/Resolved]
  - Cerebrovascular accident [Unknown]
